FAERS Safety Report 9248908 (Version 1)
Quarter: 2013Q2

REPORT INFORMATION
  Report Type: Spontaneous
  Country: US (occurrence: None)
  Receive Date: 20130419
  Receipt Date: 20130419
  Transmission Date: 20140414
  Serious: No
  Sender: FDA-Public Use
  Company Number: None

PATIENT
  Sex: Female

DRUGS (1)
  1. COPAXONE [Suspect]
     Indication: MULTIPLE SCLEROSIS
     Dosage: 20 MG DAILY SQ
     Route: 058
     Dates: start: 20100107, end: 20130417

REACTIONS (3)
  - Micturition urgency [None]
  - Immunosuppression [None]
  - Infection [None]
